FAERS Safety Report 6461118-5 (Version None)
Quarter: 2009Q4

REPORT INFORMATION
  Report Type: 
  Country: None (occurrence: None)
  Receive Date: 20091130
  Receipt Date: 20091123
  Transmission Date: 20100525
  Serious: Yes (Life-Threatening, Hospitalization)
  Sender: FDA-Public Use
  Company Number: R0006241B

PATIENT
  Sex: Female

DRUGS (4)
  1. BLINDED VACCINE [Suspect]
     Route: 030
     Dates: start: 20080919, end: 20080919
  2. HALOPERIDOL [Suspect]
     Indication: DELIRIUM
  3. AUGMENTIN [Suspect]
  4. NEXIUM [Suspect]
     Indication: PROPHYLAXIS

REACTIONS (1)
  - HEPATITIS [None]
